FAERS Safety Report 19785202 (Version 1)
Quarter: 2021Q3

REPORT INFORMATION
  Report Type: Spontaneous
  Country: US (occurrence: US)
  Receive Date: 20210903
  Receipt Date: 20210903
  Transmission Date: 20211014
  Serious: Yes (Other)
  Sender: FDA-Public Use
  Company Number: US-SA-2021SA289634

PATIENT

DRUGS (6)
  1. PLAVIX [Suspect]
     Active Substance: CLOPIDOGREL BISULFATE
     Dosage: UNK
     Route: 065
  2. DOFETILIDE. [Concomitant]
     Active Substance: DOFETILIDE
     Indication: ATRIAL FIBRILLATION
     Dosage: 025MG
     Route: 048
     Dates: start: 20210721
  3. AMIODARONE HYDROCHLORIDE. [Suspect]
     Active Substance: AMIODARONE HYDROCHLORIDE
     Dosage: UNK
  4. QUINIDINE [Suspect]
     Active Substance: QUINIDINE
     Indication: ATRIAL FIBRILLATION
     Dosage: UNK
  5. ALPRAZOLAM. [Concomitant]
     Active Substance: ALPRAZOLAM
     Dosage: 0.5 DF, TID
     Route: 048
     Dates: start: 20210527
  6. TIKOSYN [Concomitant]
     Active Substance: DOFETILIDE
     Indication: ATRIAL FIBRILLATION
     Dosage: 025MG

REACTIONS (6)
  - Hyperthyroidism [Unknown]
  - Haemorrhage [Unknown]
  - Rash [Unknown]
  - Thrombocytopenia [Unknown]
  - Pulmonary toxicity [Unknown]
  - Pruritus [Unknown]
